FAERS Safety Report 6691934-6 (Version None)
Quarter: 2010Q2

REPORT INFORMATION
  Report Type: 
  Country: None (occurrence: None)
  Receive Date: 20100422
  Receipt Date: 20090923
  Transmission Date: 20101027
  Serious: No
  Sender: FDA-Public Use
  Company Number: US-ASTRAZENECA-2009SE14872

PATIENT
  Sex: Female

DRUGS (2)
  1. METOPROLOL SUCCINATE [Suspect]
     Route: 048
  2. DIOVAN [Concomitant]

REACTIONS (2)
  - DRUG ADMINISTRATION ERROR [None]
  - HEART RATE DECREASED [None]
